FAERS Safety Report 10599291 (Version 2)
Quarter: 2014Q4

REPORT INFORMATION
  Report Type: Spontaneous
  Country: US (occurrence: US)
  Receive Date: 20141121
  Receipt Date: 20141121
  Transmission Date: 20150529
  Serious: No
  Sender: FDA-Public Use
  Company Number: US-GLAXOSMITHKLINE-A1082955A

PATIENT

DRUGS (1)
  1. FLOVENT [Suspect]
     Active Substance: FLUTICASONE PROPIONATE
     Indication: BRONCHITIS
     Route: 055
     Dates: start: 201407

REACTIONS (3)
  - Drug administration error [Unknown]
  - Product quality issue [Unknown]
  - Bronchitis [Unknown]

NARRATIVE: CASE EVENT DATE: 201407
